FAERS Safety Report 5666984-9 (Version None)
Quarter: 2008Q1

REPORT INFORMATION
  Report Type: 
  Country: None (occurrence: None)
  Receive Date: 20080315
  Receipt Date: 20080108
  Transmission Date: 20080703
  Serious: No
  Sender: FDA-Public Use
  Company Number: US-ABBOTT-08P-163-0432979-00

PATIENT
  Sex: Female
  Weight: 35.866 kg

DRUGS (9)
  1. HUMIRA [Suspect]
     Indication: CROHN'S DISEASE
     Route: 058
  2. HUMIRA [Suspect]
     Route: 058
     Dates: start: 20070701
  3. METHOTREXATE [Concomitant]
     Indication: CROHN'S DISEASE
     Route: 030
  4. BUDESONIDE [Concomitant]
     Indication: GASTRIC HYPERMOTILITY
     Route: 048
  5. PREDNISONE [Concomitant]
     Indication: GASTROINTESTINAL INFLAMMATION
     Route: 048
  6. IMODIUM [Concomitant]
     Indication: DIARRHOEA
     Route: 048
  7. CALCIUM [Concomitant]
     Indication: MINERAL SUPPLEMENTATION
     Route: 048
  8. ERGOCALCIFEROL [Concomitant]
     Indication: VITAMIN SUPPLEMENTATION
     Route: 048
  9. ACETAMINOPHEN W/ CODEINE [Concomitant]
     Indication: INJECTION SITE PAIN
     Route: 048

REACTIONS (2)
  - DRUG INEFFECTIVE [None]
  - INJECTION SITE PAIN [None]
